FAERS Safety Report 10414694 (Version 2)
Quarter: 2014Q3

REPORT INFORMATION
  Report Type: Report from Study
  Country: TH (occurrence: TH)
  Receive Date: 20140828
  Receipt Date: 20140912
  Transmission Date: 20150326
  Serious: Yes (Hospitalization)
  Sender: FDA-Public Use
  Company Number: TH-009507513-1408THA014319

PATIENT
  Age: 31 Year
  Sex: Female

DRUGS (1)
  1. PEGASYS [Suspect]
     Active Substance: PEGINTERFERON ALFA-2A
     Indication: CHRONIC HEPATITIS B
     Dosage: 180 MICROGRAM, QW
     Dates: start: 20131118

REACTIONS (2)
  - Overdose [Unknown]
  - Adjustment disorder [Unknown]

NARRATIVE: CASE EVENT DATE: 20140817
